FAERS Safety Report 6324522-1 (Version None)
Quarter: 2009Q3

REPORT INFORMATION
  Report Type: 
  Country: None (occurrence: None)
  Receive Date: 20090824
  Receipt Date: 20090818
  Transmission Date: 20100115
  Serious: Yes (Death)
  Sender: FDA-Public Use
  Company Number: US-JNJFOC-20080903723

PATIENT
  Sex: Male
  Weight: 110.68 kg

DRUGS (14)
  1. FENTANYL TRANSDERMAL SYSTEM [Suspect]
     Indication: PROCEDURAL PAIN
     Route: 062
  2. VALIUM [Suspect]
     Indication: ANXIETY
     Route: 048
  3. OXYCODONE [Suspect]
     Indication: BACK PAIN
     Route: 065
  4. DIAZEPAM [Concomitant]
     Indication: PAIN
     Route: 042
  5. PERCOCET [Concomitant]
     Indication: PAIN
     Route: 048
  6. METOPROLOL [Concomitant]
  7. DILAUDID [Concomitant]
     Indication: PROCEDURAL PAIN
     Route: 042
  8. ENOXAPARIN SODIUM [Concomitant]
  9. AMBIEN [Concomitant]
  10. ACETAMOPHEN [Concomitant]
  11. MAALOX [Concomitant]
     Route: 048
  12. NORCO [Concomitant]
     Indication: PAIN
     Route: 048
  13. VICODIN [Concomitant]
     Indication: PAIN
     Route: 048
  14. ZANAFLEX [Concomitant]
     Route: 048

REACTIONS (3)
  - DRUG TOXICITY [None]
  - NARCOTIC INTOXICATION [None]
  - OFF LABEL USE [None]
